FAERS Safety Report 6830234-8 (Version None)
Quarter: 2010Q3

REPORT INFORMATION
  Report Type: 
  Country: None (occurrence: None)
  Receive Date: 20100712
  Receipt Date: 20100701
  Transmission Date: 20110219
  Serious: Yes (Death, Hospitalization)
  Sender: FDA-Public Use
  Company Number: US-BIOGENIDEC-2009BI037602

PATIENT
  Age: 47 Year
  Sex: Female
  Weight: 61 kg

DRUGS (1)
  1. TYSABRI [Suspect]
     Indication: MULTIPLE SCLEROSIS
     Route: 042
     Dates: start: 20070108, end: 20091105

REACTIONS (9)
  - BACK PAIN [None]
  - COMPLEX PARTIAL SEIZURES [None]
  - INTERVERTEBRAL DISC PROTRUSION [None]
  - LUNG ADENOCARCINOMA METASTATIC [None]
  - METASTASES TO CENTRAL NERVOUS SYSTEM [None]
  - METASTASES TO SPINE [None]
  - PNEUMONIA [None]
  - RESPIRATORY DISORDER [None]
  - VIITH NERVE PARALYSIS [None]
